FAERS Safety Report 7741450-5 (Version None)
Quarter: 2011Q3

REPORT INFORMATION
  Report Type: 
  Country: None (occurrence: None)
  Receive Date: 20110909
  Receipt Date: 20110826
  Transmission Date: 20111222
  Serious: Yes (Other)
  Sender: FDA-Public Use
  Company Number: GB-JNJFOC-20110812318

PATIENT
  Sex: Female
  Weight: 56 kg

DRUGS (2)
  1. LACTULOSE [Concomitant]
     Indication: ANAL FISSURE
     Route: 065
     Dates: start: 20110613
  2. REMICADE [Suspect]
     Indication: PSORIASIS
     Route: 042
     Dates: start: 20110112, end: 20110421

REACTIONS (2)
  - ABORTION INDUCED [None]
  - MATERNAL EXPOSURE DURING PREGNANCY [None]
